FAERS Safety Report 4659231-8 (Version None)
Quarter: 2005Q2

REPORT INFORMATION
  Report Type: 
  Country: None (occurrence: None)
  Receive Date: 20050511
  Receipt Date: 20050505
  Transmission Date: 20051028
  Serious: Yes (Hospitalization)
  Sender: FDA-Public Use
  Company Number: 2005UW07052

PATIENT
  Age: 51 Year
  Sex: Female

DRUGS (2)
  1. SEROQUEL [Suspect]
     Route: 048
  2. ALCOHOL [Suspect]
     Dosage: 1/5 TH OF BOTTLE
     Route: 048

REACTIONS (3)
  - ALCOHOL USE [None]
  - HYPOTENSION [None]
  - MULTIPLE DRUG OVERDOSE [None]
